FAERS Safety Report 10192012 (Version 1)
Quarter: 2014Q2

REPORT INFORMATION
  Report Type: Spontaneous
  Country: US (occurrence: US)
  Receive Date: 20140523
  Receipt Date: 20140523
  Transmission Date: 20141212
  Serious: Yes (Hospitalization)
  Sender: FDA-Public Use
  Company Number: US-PFIZER INC-2014138359

PATIENT
  Age: 88 Year
  Sex: Female
  Weight: 74.83 kg

DRUGS (11)
  1. CADUET [Suspect]
     Indication: HYPERTENSION
     Dosage: UNK, 1X/DAY
  2. PROTONIX [Suspect]
     Indication: GASTRIC DISORDER
     Dosage: 40 MG, 1X/DAY
     Route: 048
  3. DETROL LA [Suspect]
     Indication: URINARY INCONTINENCE
     Dosage: 4 MG, 1X/DAY
     Route: 048
  4. ARICEPT [Concomitant]
     Dosage: UNK
  5. LEVOTHYROXINE [Concomitant]
     Indication: THYROID DISORDER
     Dosage: UNK
  6. CARVEDILOL [Concomitant]
     Indication: HYPERTENSION
     Dosage: UNK
     Dates: end: 201405
  7. NORVASC [Concomitant]
     Indication: HYPERTENSION
     Dosage: UNK
     Dates: end: 201405
  8. FLUOXETINE [Concomitant]
     Dosage: UNK
  9. VITAMIN C [Concomitant]
     Dosage: UNK
  10. WARFARIN [Concomitant]
     Dosage: 2 MG, AS NEEDED
  11. SOLU-MEDROL [Concomitant]
     Dosage: UNK
     Route: 042

REACTIONS (3)
  - Bronchitis chronic [Recovering/Resolving]
  - Respiratory distress [Recovering/Resolving]
  - Respiratory disorder [Recovering/Resolving]
